FAERS Safety Report 7079973-7 (Version None)
Quarter: 2010Q4

REPORT INFORMATION
  Report Type: 
  Country: None (occurrence: None)
  Receive Date: 20101102
  Receipt Date: 20101028
  Transmission Date: 20110411
  Serious: Yes (Other)
  Sender: FDA-Public Use
  Company Number: US-B.I. PHARMACEUTICALS,INC./RIDGEFIELD-2010-BP-12136BP

PATIENT
  Age: 83 Year
  Sex: Male

DRUGS (1)
  1. MIRAPEX [Suspect]
     Indication: RESTLESS LEGS SYNDROME
     Dosage: 0.25 MG
     Route: 048
     Dates: start: 20000101

REACTIONS (5)
  - ABDOMINAL PAIN [None]
  - BALANCE DISORDER [None]
  - NEPHROLITHIASIS [None]
  - PROSTATE CANCER [None]
  - WEIGHT DECREASED [None]
